FAERS Safety Report 13321943 (Version 3)
Quarter: 2017Q2

REPORT INFORMATION
  Report Type: Spontaneous
  Country: US (occurrence: US)
  Receive Date: 20170310
  Receipt Date: 20170403
  Transmission Date: 20170830
  Serious: Yes (Death, Other)
  Sender: FDA-Public Use
  Company Number: US-ASTELLAS-2017US009261

PATIENT
  Sex: Male

DRUGS (20)
  1. ZESTRIL [Concomitant]
     Active Substance: LISINOPRIL
     Indication: PRODUCT USED FOR UNKNOWN INDICATION
     Route: 048
  2. DELTASONE                          /00016001/ [Concomitant]
     Indication: PRODUCT USED FOR UNKNOWN INDICATION
     Route: 048
  3. COMPAZINE                          /00013302/ [Concomitant]
     Active Substance: PROCHLORPERAZINE EDISYLATE
     Indication: PRODUCT USED FOR UNKNOWN INDICATION
     Dosage: 10 MG, EVERY 6 HOURS AS NEEDED
     Route: 048
  4. ZOFRAN [Concomitant]
     Active Substance: ONDANSETRON HYDROCHLORIDE
     Indication: PRODUCT USED FOR UNKNOWN INDICATION
     Dosage: 8 MG, EVERY 8 HOURS AS NEEDED
     Route: 048
  5. SENNA S [Concomitant]
     Active Substance: DOCUSATE SODIUM\SENNA LEAF
     Indication: PRODUCT USED FOR UNKNOWN INDICATION
     Route: 048
  6. ZYLOPRIM [Concomitant]
     Active Substance: ALLOPURINOL
     Indication: PRODUCT USED FOR UNKNOWN INDICATION
     Dosage: 100 MG, TWICE DAILY (WITHOUT PHYSICIAN CONSENT, DRINK PLENTY OF WATER)
     Route: 048
  7. ATIVAN [Concomitant]
     Active Substance: LORAZEPAM
     Indication: ANXIETY
     Dosage: 1 MG, EVERY 6 HOURS AS NEEDED
     Route: 048
  8. ASPIRIN. [Concomitant]
     Active Substance: ASPIRIN
     Indication: PRODUCT USED FOR UNKNOWN INDICATION
     Route: 048
  9. LOPRESSOR [Concomitant]
     Active Substance: METOPROLOL TARTRATE
     Indication: PRODUCT USED FOR UNKNOWN INDICATION
     Route: 048
  10. ROXICODONE [Concomitant]
     Active Substance: OXYCODONE HYDROCHLORIDE
     Indication: PAIN
     Dosage: 5 TO 10 MG EVERY 04 HOURS AS NEEDED
     Route: 048
  11. XTANDI [Suspect]
     Active Substance: ENZALUTAMIDE
     Indication: HORMONE-REFRACTORY PROSTATE CANCER
     Route: 048
     Dates: start: 20160707
  12. XTANDI [Suspect]
     Active Substance: ENZALUTAMIDE
     Route: 048
     Dates: start: 20170204, end: 20170304
  13. PRINIVIL [Concomitant]
     Active Substance: LISINOPRIL
     Indication: PRODUCT USED FOR UNKNOWN INDICATION
     Route: 048
  14. FERROUS SULFATE. [Concomitant]
     Active Substance: FERROUS SULFATE
     Indication: PRODUCT USED FOR UNKNOWN INDICATION
     Dosage: 1 TAB DAILY FOR 1 WEEK THEN 2 TAB DAILY FOR 1 WEEK AND THEN 3 TABS DAILY
     Route: 048
  15. LASIX [Concomitant]
     Active Substance: FUROSEMIDE
     Indication: PRODUCT USED FOR UNKNOWN INDICATION
     Dosage: 60 MG, ONCE DAILY AS NEEDED (IF WEIGHT IS LESS THAN 205 LBS)
     Route: 048
  16. ZYTIGA [Concomitant]
     Active Substance: ABIRATERONE ACETATE
     Indication: PRODUCT USED FOR UNKNOWN INDICATION
     Route: 048
  17. CIPRO [Concomitant]
     Active Substance: CIPROFLOXACIN HYDROCHLORIDE
     Indication: PRODUCT USED FOR UNKNOWN INDICATION
     Route: 048
  18. POTASSIUM CHLORIDE. [Concomitant]
     Active Substance: POTASSIUM CHLORIDE
     Indication: PRODUCT USED FOR UNKNOWN INDICATION
     Route: 065
  19. PREVACID [Concomitant]
     Active Substance: LANSOPRAZOLE
     Indication: DYSPEPSIA
     Route: 048
  20. AMBIEN [Concomitant]
     Active Substance: ZOLPIDEM TARTRATE
     Indication: SLEEP DISORDER
     Dosage: 10 MG, AT BEDTIME AS NEEDED
     Route: 048

REACTIONS (2)
  - Cardiac failure congestive [Fatal]
  - Malignant neoplasm progression [Fatal]
